FAERS Safety Report 8177018-9 (Version None)
Quarter: 2012Q1

REPORT INFORMATION
  Report Type: 
  Country: None (occurrence: None)
  Receive Date: 20120301
  Receipt Date: 20120223
  Transmission Date: 20120608
  Serious: Yes (Hospitalization)
  Sender: FDA-Public Use
  Company Number: US-ABBOTT-12P-163-0908594-00

PATIENT
  Sex: Female
  Weight: 66.738 kg

DRUGS (9)
  1. HUMIRA [Suspect]
  2. FOLIC ACID [Concomitant]
     Indication: VITAMIN SUPPLEMENTATION
  3. CALCIUM [Concomitant]
     Indication: MINERAL SUPPLEMENTATION
  4. HUMIRA [Suspect]
  5. METHOTREXATE [Suspect]
     Indication: RHEUMATOID ARTHRITIS
  6. HUMIRA [Suspect]
     Dates: end: 20110101
  7. EVENING PRIMROSE [Concomitant]
     Indication: HOT FLUSH
  8. HUMIRA [Suspect]
     Indication: RHEUMATOID ARTHRITIS
     Dates: start: 20110101
  9. HUMIRA [Suspect]
     Indication: RHEUMATOID ARTHRITIS
     Dates: start: 20081101, end: 20091001

REACTIONS (7)
  - HEPATIC ENZYME INCREASED [None]
  - BACTERIAL INFECTION [None]
  - CLOSTRIDIAL INFECTION [None]
  - DERMAL CYST [None]
  - OSTEOARTHRITIS [None]
  - ABSCESS [None]
  - COLITIS [None]
